FAERS Safety Report 18727685 (Version 1)
Quarter: 2021Q1

REPORT INFORMATION
  Report Type: Spontaneous
  Country: CA (occurrence: CA)
  Receive Date: 20210112
  Receipt Date: 20210112
  Transmission Date: 20210419
  Serious: Yes (Hospitalization)
  Sender: FDA-Public Use
  Company Number: CA-GILEAD-2020-0509341

PATIENT
  Age: 58 Year
  Sex: Female

DRUGS (1)
  1. AMBRISENTAN [Suspect]
     Active Substance: AMBRISENTAN
     Indication: PULMONARY ARTERIAL HYPERTENSION
     Dosage: 10 MG, 3 TIMES A WEEK
     Route: 065
     Dates: start: 20200226

REACTIONS (3)
  - Illness [Recovered/Resolved]
  - Inappropriate schedule of product administration [Unknown]
  - Adverse drug reaction [Recovered/Resolved]
